FAERS Safety Report 8649493 (Version 2)
Quarter: 2012Q4

REPORT INFORMATION
  Report Type: 
  Country: FR (occurrence: FR)
  Receive Date: 20120705
  Receipt Date: 20120914
  Transmission Date: 20130627
  Serious: No
  Sender: FDA-Public Use
  Company Number: FR-PFIZER INC-2012154498

PATIENT
  Age: 57 Year
  Sex: Male

DRUGS (1)
  1. XALATAN [Suspect]
     Indication: PROPHYLAXIS
     Dosage: 1 Gtt in both eyes, 1x/day
     Route: 047
     Dates: start: 2012

REACTIONS (3)
  - Nausea [Not Recovered/Not Resolved]
  - Decreased appetite [Not Recovered/Not Resolved]
  - Gastrooesophageal reflux disease [Unknown]
